FAERS Safety Report 5081899-5 (Version None)
Quarter: 2006Q3

REPORT INFORMATION
  Report Type: 
  Country: None (occurrence: None)
  Receive Date: 20060816
  Receipt Date: 20060728
  Transmission Date: 20061208
  Serious: Yes (Other)
  Sender: FDA-Public Use
  Company Number: JP-MERCK-0608USA02647

PATIENT
  Age: 55 Year
  Sex: Male

DRUGS (6)
  1. COZAAR [Suspect]
     Route: 048
     Dates: start: 20060712, end: 20060727
  2. ARTIST [Suspect]
     Route: 048
     Dates: start: 20060712, end: 20060727
  3. PANALDINE [Suspect]
     Route: 048
     Dates: start: 20060710
  4. 8-HOUR BAYER [Suspect]
     Route: 048
     Dates: start: 20060701
  5. LIPITOR [Suspect]
     Route: 048
     Dates: start: 20060712, end: 20060727
  6. OMEPRAZOLE [Suspect]
     Route: 065
     Dates: start: 20060710, end: 20060727

REACTIONS (1)
  - PLATELET COUNT INCREASED [None]
